FAERS Safety Report 4816542-0 (Version None)
Quarter: 2005Q4

REPORT INFORMATION
  Report Type: 
  Country: None (occurrence: None)
  Receive Date: 20051101
  Receipt Date: 20050725
  Transmission Date: 20060501
  Serious: Yes (Hospitalization)
  Sender: FDA-Public Use
  Company Number: PHBS2005JP10886

PATIENT
  Age: 91 Year
  Sex: Female

DRUGS (3)
  1. VOLTAREN [Suspect]
     Indication: PHARYNGOLARYNGEAL PAIN
     Dosage: 12.5 MG/DAY
     Route: 054
     Dates: start: 20050720
  2. ALLOZYM [Suspect]
     Route: 048
     Dates: start: 20050624
  3. RISPERDAL [Suspect]
     Dosage: UNK, UNK
     Route: 048
     Dates: start: 20050601

REACTIONS (6)
  - MUCOSAL EROSION [None]
  - OCULOMUCOCUTANEOUS SYNDROME [None]
  - PHARYNGOLARYNGEAL PAIN [None]
  - PYREXIA [None]
  - RASH GENERALISED [None]
  - SWELLING FACE [None]
